FAERS Safety Report 11498214 (Version 1)
Quarter: 2015Q3

REPORT INFORMATION
  Report Type: Spontaneous
  Country: US (occurrence: US)
  Receive Date: 20150911
  Receipt Date: 20150911
  Transmission Date: 20151125
  Serious: Yes (Hospitalization)
  Sender: FDA-Public Use
  Company Number: US-CELGENEUS-USA-2015091992

PATIENT
  Age: 66 Year
  Sex: Male
  Weight: 108.96 kg

DRUGS (5)
  1. REVLIMID [Suspect]
     Active Substance: LENALIDOMIDE
     Route: 048
     Dates: start: 201509
  2. REVLIMID [Suspect]
     Active Substance: LENALIDOMIDE
     Indication: PLASMA CELL MYELOMA
     Route: 048
     Dates: start: 200910
  3. REVLIMID [Suspect]
     Active Substance: LENALIDOMIDE
     Dosage: 15-10-5 MG
     Route: 048
     Dates: start: 201012
  4. REVLIMID [Suspect]
     Active Substance: LENALIDOMIDE
     Dosage: 5MG ALTERNATING WITH 10MG
     Route: 048
     Dates: start: 201410
  5. REVLIMID [Suspect]
     Active Substance: LENALIDOMIDE
     Route: 048
     Dates: start: 201003

REACTIONS (1)
  - Lung infection [Recovered/Resolved]

NARRATIVE: CASE EVENT DATE: 201506
